FAERS Safety Report 7394699-8 (Version None)
Quarter: 2011Q2

REPORT INFORMATION
  Report Type: 
  Country: None (occurrence: None)
  Receive Date: 20110405
  Receipt Date: 20110322
  Transmission Date: 20111010
  Serious: Yes (Hospitalization, Other)
  Sender: FDA-Public Use
  Company Number: PHEH2008US03781

PATIENT
  Sex: Female

DRUGS (65)
  1. AREDIA [Suspect]
  2. ZOMETA [Suspect]
  3. PENICILLIN ^GRUNENTHAL^ [Concomitant]
  4. CEPHALEXIN [Concomitant]
  5. CIPROFLOXACIN [Concomitant]
  6. SEROQUEL [Concomitant]
     Dosage: UNK
     Dates: end: 20090729
  7. COMPAZINE [Concomitant]
     Dosage: 10 MG, PRN
  8. KLOR-CON [Concomitant]
  9. OXYCODONE [Concomitant]
  10. ARGATROBAN [Concomitant]
     Indication: DEEP VEIN THROMBOSIS
  11. DIFLUCAN [Concomitant]
     Indication: PYREXIA
  12. KEFLEX [Concomitant]
  13. MAGNESIUM OXIDE [Concomitant]
  14. REGLAN [Concomitant]
     Dosage: 10 MG P.O, QID
  15. CYMBALTA [Concomitant]
     Dosage: 60 MG, QD
  16. OXYGEN [Concomitant]
     Indication: HYPOXIA
  17. VICODIN [Concomitant]
  18. CHEMOTHERAPEUTICS,OTHER [Concomitant]
  19. COUMADIN [Concomitant]
  20. OXYCONTIN [Concomitant]
  21. SENNA [Concomitant]
  22. ZANTAC [Concomitant]
  23. MECLOMEN [Concomitant]
  24. PROZAC [Concomitant]
  25. AVELOX [Concomitant]
     Indication: PNEUMONIA
  26. CYTOXAN [Concomitant]
     Indication: RENAL CELL CARCINOMA
  27. NEURONTIN [Concomitant]
     Dosage: 300 MG, TID
  28. MARCAINE [Concomitant]
  29. BACTRIM [Concomitant]
     Route: 048
  30. BIAXIN [Concomitant]
     Dosage: 250 MG, BID
     Route: 048
  31. RITALIN [Concomitant]
     Dosage: 80 MG, BID
  32. PRILOSEC [Concomitant]
  33. MACROBID [Concomitant]
     Dosage: 100 MG P.O. QHS
  34. LORAZEPAM [Concomitant]
     Dosage: 2 MG P.O QHS
     Route: 048
  35. METHADONE [Concomitant]
     Dosage: 10 MG, QHS AND PRN
  36. ORTHO-CEPT [Concomitant]
     Dosage: P.O DAILY
     Route: 048
  37. THALIDOMIDE [Concomitant]
     Indication: RENAL CELL CARCINOMA
  38. TEQUIN [Concomitant]
     Indication: PYREXIA
  39. RISPERDAL [Concomitant]
  40. LEXAPRO [Concomitant]
  41. VIOXX [Concomitant]
     Dosage: 25 MG, QD
     Route: 048
  42. TETRACYCLINE [Concomitant]
  43. PHAZYME [Concomitant]
     Dosage: P.O DAILY
     Route: 048
  44. OXYCODONE HCL [Concomitant]
     Dosage: 5 MG Q. 4H
  45. XELODA [Concomitant]
     Indication: RENAL CELL CARCINOMA
  46. GEMCITABINE [Concomitant]
     Indication: RENAL CELL CARCINOMA
  47. LOVENOX [Concomitant]
     Indication: PROPHYLAXIS
  48. BLOOD AND RELATED PRODUCTS [Concomitant]
  49. OXYFAST [Concomitant]
  50. RADIATION THERAPY [Concomitant]
  51. CHLORHEXIDINE GLUCONATE [Concomitant]
  52. MELATONIN [Concomitant]
  53. PAXIL [Concomitant]
  54. PREDNISONE [Concomitant]
     Indication: DYSPNOEA
  55. QUINOLONE ANTIBACTERIALS [Concomitant]
     Indication: RESPIRATORY TRACT INFECTION
  56. DOXYCYCLINE [Concomitant]
     Indication: RESPIRATORY TRACT INFECTION
  57. CELEXA [Concomitant]
     Indication: PSYCHOTIC DISORDER
     Dosage: 60 MG, QD
  58. DEPO-PROVERA [Concomitant]
  59. DILAUDID [Concomitant]
  60. XANAX [Concomitant]
  61. AMBIEN [Concomitant]
     Dosage: UNK
     Route: 048
  62. NEXIUM [Concomitant]
  63. YEAST [Concomitant]
  64. LASIX [Concomitant]
     Indication: OEDEMA
  65. ORAL CONTRACEPTIVE NOS [Concomitant]

REACTIONS (60)
  - RESPIRATORY FAILURE [None]
  - HYPOXIA [None]
  - LUNG INFILTRATION [None]
  - OSTEOMYELITIS [None]
  - BREATH ODOUR [None]
  - STOMATITIS [None]
  - THROMBOCYTOPENIA [None]
  - PNEUMONIA [None]
  - OESOPHAGEAL STENOSIS [None]
  - IMPAIRED GASTRIC EMPTYING [None]
  - PAIN [None]
  - SMALL INTESTINAL OBSTRUCTION [None]
  - ASTHENIA [None]
  - DIZZINESS [None]
  - HEADACHE [None]
  - CHRONIC SINUSITIS [None]
  - CERVICAL DYSPLASIA [None]
  - NODULE [None]
  - FIBROSIS [None]
  - MUSCULOSKELETAL PAIN [None]
  - NEOPLASM MALIGNANT [None]
  - SPINAL CORD DISORDER [None]
  - ACTINOMYCES TEST POSITIVE [None]
  - AMNESIA [None]
  - ACUTE PSYCHOSIS [None]
  - BONE LESION [None]
  - SCAR [None]
  - OSTEOSCLEROSIS [None]
  - TOOTH LOSS [None]
  - DELIRIUM [None]
  - SPEECH DISORDER [None]
  - OEDEMA PERIPHERAL [None]
  - WEIGHT DECREASED [None]
  - AMENORRHOEA [None]
  - OSTEONECROSIS OF JAW [None]
  - CELLULITIS [None]
  - INTERSTITIAL LUNG DISEASE [None]
  - PARANOIA [None]
  - SEBORRHOEIC KERATOSIS [None]
  - HALLUCINATION, AUDITORY [None]
  - CANDIDIASIS [None]
  - VOMITING [None]
  - PARAESTHESIA [None]
  - DYSPNOEA [None]
  - BONE DISORDER [None]
  - URINARY TRACT INFECTION [None]
  - INSOMNIA [None]
  - PYELOCALIECTASIS [None]
  - KERATITIS [None]
  - METASTASES TO BONE [None]
  - VAGINAL HAEMORRHAGE [None]
  - INFECTION [None]
  - DEFORMITY [None]
  - PAIN IN EXTREMITY [None]
  - DEEP VEIN THROMBOSIS [None]
  - DISCOMFORT [None]
  - HYPOKALAEMIA [None]
  - CONSTIPATION [None]
  - PANCYTOPENIA [None]
  - BRONCHITIS [None]
